FAERS Safety Report 7355899-6 (Version None)
Quarter: 2011Q1

REPORT INFORMATION
  Report Type: 
  Country: None (occurrence: None)
  Receive Date: 20110316
  Receipt Date: 20101026
  Transmission Date: 20110831
  Serious: No
  Sender: FDA-Public Use
  Company Number: US-BAYER-201023081BCC

PATIENT
  Age: 10 Year
  Sex: Female

DRUGS (1)
  1. RID LICE KILLING SHAMPOO AND CONDITIONER [Suspect]
     Indication: LICE INFESTATION
     Dosage: USED ON 22-OCT, 24-OCT AND 25-OCT
     Route: 061
     Dates: start: 20101022, end: 20101025

REACTIONS (1)
  - NO ADVERSE EVENT [None]
